FAERS Safety Report 18834809 (Version 1)
Quarter: 2021Q1

REPORT INFORMATION
  Report Type: Spontaneous
  Country: US (occurrence: US)
  Receive Date: 20210203
  Receipt Date: 20210203
  Transmission Date: 20210419
  Serious: Yes (Hospitalization)
  Sender: FDA-Public Use
  Company Number: None

PATIENT
  Age: 20 Year
  Sex: Female
  Weight: 68.04 kg

DRUGS (4)
  1. TIMOPTIC [Concomitant]
     Active Substance: TIMOLOL MALEATE
  2. ALPHAGAN P [Concomitant]
     Active Substance: BRIMONIDINE TARTRATE
  3. ANNOVERA [Suspect]
     Active Substance: ETHINYL ESTRADIOL\SEGESTERONE ACETATE
     Dates: start: 20210201, end: 20210201
  4. AZOPT [Concomitant]
     Active Substance: BRINZOLAMIDE

REACTIONS (5)
  - Vomiting [None]
  - Swelling face [None]
  - Paraesthesia oral [None]
  - Paraesthesia [None]
  - Anaphylactic shock [None]

NARRATIVE: CASE EVENT DATE: 20210201
